FAERS Safety Report 21481148 (Version 1)
Quarter: 2022Q4

REPORT INFORMATION
  Report Type: Other
  Country: US (occurrence: US)
  Receive Date: 20221019
  Receipt Date: 20221019
  Transmission Date: 20230113
  Serious: Yes (Hospitalization, Other)
  Sender: FDA-Public Use
  Company Number: US-Covis Pharma GmbH-2022COV22038

PATIENT
  Age: 32 Year
  Sex: Female
  Weight: 89.438 kg

DRUGS (11)
  1. MAKENA [Suspect]
     Active Substance: HYDROXYPROGESTERONE CAPROATE
     Indication: Premature delivery
     Route: 058
     Dates: start: 20220811, end: 20220811
  2. ACETAMINOPHEN [Concomitant]
     Active Substance: ACETAMINOPHEN
     Indication: Product used for unknown indication
     Dosage: 325 MG ORAL EVERY 6 HOURS AS NEEDED FOR PAIN
     Route: 048
  3. CETIRIZINE HYDROCHLORIDE [Concomitant]
     Active Substance: CETIRIZINE HYDROCHLORIDE
     Indication: Product used for unknown indication
     Dosage: 10MG ONCE DAILY
     Dates: start: 20210213
  4. DUPILUMAB [Concomitant]
     Active Substance: DUPILUMAB
     Indication: Product used for unknown indication
     Dosage: 300MG/2ML SYRINGE EVERY 14 DAYS
     Dates: start: 20210121
  5. FAMOTIDINE [Concomitant]
     Active Substance: FAMOTIDINE
     Indication: Product used for unknown indication
     Dosage: 40MG ORAL ONCE DAILY
     Route: 048
     Dates: start: 20210611
  6. Hydroxyzine HCL (Atarax) [Concomitant]
     Indication: Product used for unknown indication
     Dosage: 25MG ORAL
     Route: 048
     Dates: start: 20201019
  7. NYSTATIN [Concomitant]
     Active Substance: NYSTATIN
     Indication: Product used for unknown indication
     Dosage: 1,00,000 UNITS/ML SUSPENSION. 6 ML BY MOUTH 4 TIMES DAILY.
     Dates: start: 20210217
  8. KETOCONAZOLE [Concomitant]
     Active Substance: KETOCONAZOLE
     Indication: Product used for unknown indication
     Dosage: 2% SHAMPOO ONCE A WEEK
     Dates: start: 20201228
  9. PIMECROLIMUS [Concomitant]
     Active Substance: PIMECROLIMUS
     Indication: Product used for unknown indication
     Dosage: 1% CREAM- APPLY TO AFFECTED AREA OF THE BODY TWICE DAILY FOR MAINTENANCE.
  10. Valacyclovir (VALTREX) [Concomitant]
     Indication: Product used for unknown indication
     Dosage: 1000MG TABLET ORAL 3 TIMES DAILY
     Route: 048
     Dates: start: 20210701
  11. CLOBETASOL [Concomitant]
     Active Substance: CLOBETASOL
     Indication: Product used for unknown indication
     Dosage: 0.05% CREAM- APPLY TO AFFECTED AREA TWICE DAILY FOR 2 WEEKS THEN DISCONTINUE. AVOID FACE AND NECK.

REACTIONS (2)
  - Imminent abortion [Recovered/Resolved]
  - COVID-19 [Recovered/Resolved]

NARRATIVE: CASE EVENT DATE: 20220812
